FAERS Safety Report 6030640-8 (Version None)
Quarter: 2009Q1

REPORT INFORMATION
  Report Type: 
  Country: None (occurrence: None)
  Receive Date: 20090106
  Receipt Date: 20090106
  Transmission Date: 20090719
  Serious: No
  Sender: FDA-Public Use
  Company Number: None

PATIENT
  Sex: Female
  Weight: 91 kg

DRUGS (1)
  1. BISMUTH SUBSALICYLATE IN OIL INJ [Suspect]

REACTIONS (1)
  - TONGUE DISCOLOURATION [None]
